FAERS Safety Report 5262452-7 (Version None)
Quarter: 2007Q1

REPORT INFORMATION
  Report Type: 
  Country: None (occurrence: None)
  Receive Date: 20070312
  Receipt Date: 20070307
  Transmission Date: 20070707
  Serious: Yes (Hospitalization)
  Sender: FDA-Public Use
  Company Number: BE-BRISTOL-MYERS SQUIBB COMPANY-13707195

PATIENT
  Age: 26 Year
  Sex: Male

DRUGS (4)
  1. PACLITAXEL [Suspect]
     Route: 042
     Dates: start: 20070123, end: 20070213
  2. CISPLATIN [Suspect]
     Route: 042
     Dates: start: 20070123, end: 20070221
  3. BLEOMYCIN SULFATE [Suspect]
     Route: 042
     Dates: start: 20070123, end: 20070221
  4. ETOPOSIDE [Suspect]
     Route: 042
     Dates: start: 20070123, end: 20070221

REACTIONS (1)
  - DEEP VEIN THROMBOSIS [None]
